FAERS Safety Report 21440336 (Version 1)
Quarter: 2022Q4

REPORT INFORMATION
  Report Type: Spontaneous
  Country: US (occurrence: US)
  Receive Date: 20221011
  Receipt Date: 20221011
  Transmission Date: 20230113
  Serious: No
  Sender: FDA-Public Use
  Company Number: US-AMNEAL PHARMACEUTICALS-2021-AMRX-05266

PATIENT
  Age: 63 Year
  Sex: Male

DRUGS (2)
  1. LIORESAL [Suspect]
     Active Substance: BACLOFEN
     Indication: Cerebrovascular accident
     Dosage: UNK, \DAY
     Route: 037
  2. LIORESAL [Suspect]
     Active Substance: BACLOFEN
     Indication: Muscle spasticity

REACTIONS (2)
  - Fall [Recovered/Resolved]
  - Hypertonia [Not Recovered/Not Resolved]

NARRATIVE: CASE EVENT DATE: 20211109
